FAERS Safety Report 13855031 (Version 2)
Quarter: 2020Q2

REPORT INFORMATION
  Report Type: Spontaneous
  Country: US (occurrence: US)
  Receive Date: 20170810
  Receipt Date: 20200616
  Transmission Date: 20200713
  Serious: Yes (Hospitalization, Other)
  Sender: FDA-Public Use
  Company Number: US-PFIZER INC-2016244081

PATIENT
  Age: 51 Year
  Sex: Male

DRUGS (6)
  1. BUPIVACAINE HCL [Suspect]
     Active Substance: BUPIVACAINE HYDROCHLORIDE
     Dosage: 0.5%, AT A RATE OF 2 MG/H FOR 2 DAYS, TOTAL DOSE 121 MG
  2. SIMVASTATIN. [Concomitant]
     Active Substance: SIMVASTATIN
     Indication: HYPERLIPIDAEMIA
     Dosage: UNK
  3. ASPIRIN. [Concomitant]
     Active Substance: ASPIRIN
     Dosage: AS NEEDED WITHIN THE RECOMMEND DOSAGES
  4. ACETAMINOPHEN. [Concomitant]
     Active Substance: ACETAMINOPHEN
     Dosage: AS NEEDED WITHIN THE RECOMMEND DOSAGES
  5. CEFAZOLIN [Concomitant]
     Active Substance: CEFAZOLIN
     Indication: ANTIBIOTIC THERAPY
     Dosage: UNK
  6. BUPIVACAINE HCL [Suspect]
     Active Substance: BUPIVACAINE HYDROCHLORIDE
     Indication: GENERAL ANAESTHESIA
     Dosage: 5 ML, (0.5% INTRAOPERATIVELY)

REACTIONS (2)
  - Drug-induced liver injury [Recovered/Resolved]
  - Jaundice cholestatic [Recovered/Resolved]
